FAERS Safety Report 25664949 (Version 1)
Quarter: 2025Q3

REPORT INFORMATION
  Report Type: Spontaneous
  Country: US (occurrence: None)
  Receive Date: 20250809
  Receipt Date: 20250809
  Transmission Date: 20251021
  Serious: Yes (Hospitalization)
  Sender: FDA-CTU
  Company Number: None

PATIENT
  Age: 27 Year
  Sex: Female
  Weight: 65 kg

DRUGS (3)
  1. .DELTA.8-TETRAHYDROCANNABINOL\HERBALS [Suspect]
     Active Substance: .DELTA.8-TETRAHYDROCANNABINOL\HERBALS
     Indication: Insomnia
     Dosage: OTHER QUANTITY : 1 TABLET(S);?FREQUENCY : AT BEDTIME;?
     Route: 048
     Dates: start: 20250803, end: 20250803
  2. Oral Birth Control Pills [Concomitant]
  3. One-A-Day vitamins [Concomitant]

REACTIONS (6)
  - Product quality issue [None]
  - Mania [None]
  - Insomnia [None]
  - Anxiety [None]
  - Paranoia [None]
  - Confusional state [None]

NARRATIVE: CASE EVENT DATE: 20250806
